FAERS Safety Report 17995515 (Version 1)
Quarter: 2020Q3

REPORT INFORMATION
  Report Type: Spontaneous
  Country: US (occurrence: US)
  Receive Date: 20200708
  Receipt Date: 20200708
  Transmission Date: 20201103
  Serious: Yes (Other)
  Sender: FDA-Public Use
  Company Number: US-NAPPMUNDI-USA-2020-0155869

PATIENT
  Age: 72 Year
  Sex: Female

DRUGS (1)
  1. OXYCODONE HYDROCHLORIDE (SIMILAR TO NDA 22?272) [Suspect]
     Active Substance: OXYCODONE HYDROCHLORIDE
     Indication: PRODUCT USED FOR UNKNOWN INDICATION
     Dosage: UNK
     Route: 048

REACTIONS (16)
  - Fracture [Unknown]
  - Spinal fracture [Unknown]
  - Product prescribing issue [Unknown]
  - Contusion [Unknown]
  - Spinal compression fracture [Unknown]
  - Overdose [Unknown]
  - Fall [Unknown]
  - Sternal fracture [Unknown]
  - Cerebrovascular accident [Unknown]
  - Loss of consciousness [Unknown]
  - Buttock injury [Unknown]
  - Lower limb fracture [Unknown]
  - Upper limb fracture [Unknown]
  - Femur fracture [Unknown]
  - Hip fracture [Unknown]
  - Wrist fracture [Unknown]

NARRATIVE: CASE EVENT DATE: 2009
